FAERS Safety Report 19442605 (Version 1)
Quarter: 2021Q2

REPORT INFORMATION
  Report Type: Spontaneous
  Country: US (occurrence: US)
  Receive Date: 20210621
  Receipt Date: 20210621
  Transmission Date: 20210717
  Serious: No
  Sender: FDA-Public Use
  Company Number: US-PFIZER INC-2021253575

PATIENT
  Age: 64 Year
  Sex: Female

DRUGS (1)
  1. RETACRIT [Suspect]
     Active Substance: EPOETIN ALFA-EPBX
     Indication: BREAST CANCER
     Dosage: 20000 IU [INJECT 20,000 UNITS OF RETACRIT;FREQUENCY: EVERY 2WKS]

REACTIONS (2)
  - Off label use [Unknown]
  - White blood cell count decreased [Unknown]
